FAERS Safety Report 16900292 (Version 4)
Quarter: 2019Q4

REPORT INFORMATION
  Report Type: Spontaneous
  Country: JP (occurrence: JP)
  Receive Date: 20191009
  Receipt Date: 20191126
  Transmission Date: 20200122
  Serious: Yes (Death, Other)
  Sender: FDA-Public Use
  Company Number: JP-MALLINCKRODT-T201906764

PATIENT
  Age: 84 Year
  Sex: Female

DRUGS (2)
  1. SENNOSIDE A+B CALCIUM [Suspect]
     Active Substance: SENNOSIDES A AND B
     Indication: CONSTIPATION
     Dosage: 80 MILLIGRAM, QD
     Route: 048
     Dates: start: 20190610
  2. AMITIZA [Suspect]
     Active Substance: LUBIPROSTONE
     Indication: CONSTIPATION
     Dosage: 48 MICROGRAM, QD
     Route: 048
     Dates: start: 20190624, end: 20190701

REACTIONS (2)
  - Hypokalaemia [Recovered/Resolved]
  - Death [Fatal]

NARRATIVE: CASE EVENT DATE: 20190731
